FAERS Safety Report 9528832 (Version 1)
Quarter: 2013Q3

REPORT INFORMATION
  Report Type: Spontaneous
  Country: US (occurrence: US)
  Receive Date: 20130917
  Receipt Date: 20130917
  Transmission Date: 20140515
  Serious: No
  Sender: FDA-Public Use
  Company Number: US-BANPHARM-20120114

PATIENT
  Age: 70 Year
  Sex: Female
  Weight: 60 kg

DRUGS (6)
  1. ZYRTEC LIQUID GELS 10 MG [Suspect]
     Indication: HYPERSENSITIVITY
     Dosage: 1 DF, ONCE,
     Route: 048
     Dates: start: 20120828
  2. CLARITIN [Concomitant]
     Dosage: 1 CAPLET
     Route: 048
  3. CLONZAPAM [Concomitant]
     Indication: RESTLESS LEGS SYNDROME
     Dosage: 1 PILL A DAY
     Route: 048
     Dates: start: 1987
  4. LATHROXIN (LEVOTHYROXIN?) [Concomitant]
     Dosage: 1 PILL A DAY
     Route: 048
     Dates: start: 1987
  5. MIRAPEX [Concomitant]
     Indication: RESTLESS LEGS SYNDROME
     Dosage: 1 PILL A DAY
     Route: 048
     Dates: start: 1987
  6. GABATIN [Concomitant]
     Dosage: 1 PILL A DAY
     Route: 048

REACTIONS (1)
  - Drug ineffective [Unknown]
